FAERS Safety Report 22215445 (Version 1)
Quarter: 2023Q2

REPORT INFORMATION
  Report Type: Spontaneous
  Country: US (occurrence: US)
  Receive Date: 20230416
  Receipt Date: 20230416
  Transmission Date: 20230721
  Serious: No
  Sender: FDA-Public Use
  Company Number: US-JNJFOC-20191003360

PATIENT
  Age: 59 Year
  Sex: Female
  Weight: 68.100 kg

DRUGS (1)
  1. IMODIUM MULTI-SYMPTOM RELIEF [Suspect]
     Active Substance: DIMETHICONE\LOPERAMIDE HYDROCHLORIDE
     Indication: Diarrhoea
     Dosage: 2 CAPLETS THEN 1, 3 TIMES DAILY
     Route: 048
     Dates: start: 201909

REACTIONS (6)
  - Drug ineffective [Unknown]
  - Incorrect dose administered [Unknown]
  - Incorrect product administration duration [Unknown]
  - Product lot number issue [Unknown]
  - Product expiration date issue [Unknown]
  - Product barcode issue [Unknown]

NARRATIVE: CASE EVENT DATE: 20190901
